FAERS Safety Report 8862910 (Version 4)
Quarter: 2014Q4

REPORT INFORMATION
  Report Type: Spontaneous
  Country: BR (occurrence: BR)
  Receive Date: 20121026
  Receipt Date: 20141104
  Transmission Date: 20150529
  Serious: Yes (Other)
  Sender: FDA-Public Use
  Company Number: BR-PFIZER INC-2009298843

PATIENT
  Age: 42 Year
  Sex: Female
  Weight: 70 kg

DRUGS (19)
  1. LYRICA [Suspect]
     Active Substance: PREGABALIN
     Indication: FIBROMYALGIA
     Dosage: 75 MG, 1X/DAY
     Route: 048
     Dates: start: 20091113
  2. SYNTHROID [Concomitant]
     Active Substance: LEVOTHYROXINE SODIUM
     Indication: HYPOTHYROIDISM
     Dosage: 1 DF, DAILY
     Dates: start: 1994
  3. FRONTAL [Concomitant]
     Active Substance: ALPRAZOLAM
     Indication: DEPRESSION
  4. LYRICA [Suspect]
     Active Substance: PREGABALIN
     Indication: PROCEDURAL PAIN
  5. SUPRELLE [Concomitant]
     Indication: HORMONE REPLACEMENT THERAPY
     Dosage: UNK
     Dates: start: 201203
  6. LYRICA [Suspect]
     Active Substance: PREGABALIN
     Indication: ANXIETY
     Dosage: 75 MG, UNK
     Route: 048
  7. LYRICA [Suspect]
     Active Substance: PREGABALIN
     Indication: SLEEP DISORDER
     Dosage: STRENGTH 75 MG AND ANOTHER TIMES, PREGABALIN STRENGTH 150 MG
     Route: 048
  8. LYRICA [Suspect]
     Active Substance: PREGABALIN
     Indication: SPINAL PAIN
     Dosage: UNK, EVERY DAY
     Route: 048
     Dates: start: 2014, end: 201409
  9. PANTOPRAZOLE [Concomitant]
     Active Substance: PANTOPRAZOLE SODIUM
     Indication: REFLUX GASTRITIS
  10. CLIMENE [Concomitant]
     Indication: HORMONE REPLACEMENT THERAPY
     Dosage: UNK
     Dates: start: 20091110
  11. LYRICA [Suspect]
     Active Substance: PREGABALIN
     Indication: PAIN
     Dosage: UNK
     Route: 048
     Dates: start: 20141029
  12. FRONTAL [Concomitant]
     Active Substance: ALPRAZOLAM
     Indication: ANXIETY
     Dosage: 4 MG, DAILY (STRENGTH 2 MG, 2 DF DAILY)
     Dates: start: 2006
  13. TYLEX [Concomitant]
     Active Substance: ACETAMINOPHEN\CODEINE PHOSPHATE
     Dosage: UNK
  14. LYRICA [Suspect]
     Active Substance: PREGABALIN
     Indication: INSOMNIA
     Dosage: 150 MG, UNK
     Route: 048
     Dates: start: 201103
  15. PANTOPRAZOLE [Concomitant]
     Active Substance: PANTOPRAZOLE SODIUM
     Indication: GASTRITIS
     Dosage: UNK
     Dates: start: 2007
  16. LYRICA [Suspect]
     Active Substance: PREGABALIN
     Indication: OSTEOARTHRITIS
     Dosage: ONE DAY ON AND 3 DAYS OFF
     Route: 048
     Dates: start: 201403
  17. LYRICA [Suspect]
     Active Substance: PREGABALIN
     Indication: RELAXATION THERAPY
     Dosage: 150 MG (1 TABLET), 1X/DAY (AT NIGHT)
     Route: 048
     Dates: start: 20120624
  18. NORTRIPTYLINE HYDROCHLORIDE. [Concomitant]
     Active Substance: NORTRIPTYLINE HYDROCHLORIDE
     Indication: DEPRESSION
     Dosage: UNK
     Dates: start: 20091113
  19. CRESTOR [Concomitant]
     Active Substance: ROSUVASTATIN CALCIUM
     Indication: BLOOD CHOLESTEROL INCREASED
     Dosage: UNK

REACTIONS (16)
  - Chest discomfort [Unknown]
  - Flatulence [Unknown]
  - Arthropathy [Unknown]
  - Menstrual disorder [Unknown]
  - Blood oestrogen abnormal [Unknown]
  - Pain [Recovering/Resolving]
  - Dizziness [Unknown]
  - Asthenia [Recovering/Resolving]
  - Spinal disorder [Unknown]
  - Drug ineffective [Unknown]
  - Feeling of relaxation [Unknown]
  - Feeling abnormal [Unknown]
  - Mental disorder [Unknown]
  - Constipation [Unknown]
  - Somnolence [Unknown]
  - Blood thyroid stimulating hormone abnormal [Unknown]

NARRATIVE: CASE EVENT DATE: 20091113
